FAERS Safety Report 23946286 (Version 1)
Quarter: 2024Q2

REPORT INFORMATION
  Report Type: Spontaneous
  Country: US (occurrence: None)
  Receive Date: 20240605
  Receipt Date: 20240605
  Transmission Date: 20240716
  Serious: Yes (Other)
  Sender: FDA-Public Use
  Company Number: None

PATIENT
  Age: 47 Year
  Sex: Female

DRUGS (1)
  1. MEKINIST [Suspect]
     Active Substance: TRAMETINIB DIMETHYL SULFOXIDE
     Indication: Ovarian cancer
     Dosage: FREQUENCY : DAILY;?
     Route: 048
     Dates: end: 20240604

REACTIONS (8)
  - Generalised oedema [None]
  - Dizziness [None]
  - Abdominal pain upper [None]
  - Vomiting [None]
  - Nausea [None]
  - Rash [None]
  - Rash [None]
  - Skin warm [None]

NARRATIVE: CASE EVENT DATE: 20240604
